FAERS Safety Report 9316428 (Version 2)
Quarter: 2013Q4

REPORT INFORMATION
  Report Type: Spontaneous
  Country: US (occurrence: US)
  Receive Date: 20130530
  Receipt Date: 20131223
  Transmission Date: 20140711
  Serious: Yes (Hospitalization)
  Sender: FDA-Public Use
  Company Number: US-BAYER-2013-064478

PATIENT
  Age: 25 Year
  Sex: Female

DRUGS (6)
  1. YASMIN [Suspect]
  2. DIETHYLPROPION [Concomitant]
     Dosage: 75 MG, EVERY MORNING
     Route: 048
  3. TAMIFLU [Concomitant]
     Dosage: 75 MG, BID
     Route: 048
  4. XANAX [Concomitant]
     Dosage: 0.5 MG, Q 12 HOURS
     Route: 048
  5. DILAUDID [Concomitant]
  6. PHENERGAN [Concomitant]

REACTIONS (9)
  - Gallbladder injury [None]
  - Cholecystitis chronic [None]
  - Injury [None]
  - Pain [None]
  - Anxiety [None]
  - Anhedonia [None]
  - Quality of life decreased [None]
  - Pain [None]
  - Fear of disease [None]
